FAERS Safety Report 5478783-1 (Version None)
Quarter: 2007Q4

REPORT INFORMATION
  Report Type: 
  Country: None (occurrence: None)
  Receive Date: 20071002
  Receipt Date: 20070918
  Transmission Date: 20080405
  Serious: Yes (Hospitalization, Other)
  Sender: FDA-Public Use
  Company Number: 2007US002239

PATIENT
  Age: 9 Year
  Sex: Female

DRUGS (5)
  1. PROGRAF [Suspect]
     Indication: OFF LABEL USE
     Dosage: 0.1 MG/KG, BID
  2. LOSARTAN POTASSIUM [Concomitant]
  3. PREDNISONE [Concomitant]
  4. LSINOPRIL        (LISINOPRIL) [Concomitant]
  5. LABETALOL HCL [Concomitant]

REACTIONS (2)
  - BENIGN INTRACRANIAL HYPERTENSION [None]
  - OFF LABEL USE [None]
